FAERS Safety Report 7148422-2 (Version None)
Quarter: 2010Q4

REPORT INFORMATION
  Report Type: 
  Country: None (occurrence: None)
  Receive Date: 20101209
  Receipt Date: 20101116
  Transmission Date: 20110411
  Serious: No
  Sender: FDA-Public Use
  Company Number: B0613456A

PATIENT
  Sex: Female

DRUGS (4)
  1. RELENZA [Suspect]
     Indication: INFLUENZA
     Dosage: 20MG PER DAY
     Route: 055
     Dates: start: 20091204, end: 20091208
  2. CALONAL [Concomitant]
     Indication: ANTIPYRESIS
     Dosage: 600MG PER DAY
     Route: 048
     Dates: start: 20091204, end: 20091204
  3. MEDICON [Concomitant]
     Indication: ANTITUSSIVE THERAPY
     Dosage: 45MG PER DAY
     Route: 048
     Dates: start: 20091204, end: 20091204
  4. DASEN [Concomitant]
     Indication: ANTIINFLAMMATORY THERAPY
     Dosage: 30MG PER DAY
     Route: 048
     Dates: start: 20091204, end: 20091204

REACTIONS (1)
  - DRUG EXPOSURE DURING PREGNANCY [None]
